FAERS Safety Report 5606495-X (Version None)
Quarter: 2008Q1

REPORT INFORMATION
  Report Type: 
  Country: None (occurrence: None)
  Receive Date: 20080129
  Receipt Date: 20080116
  Transmission Date: 20080703
  Serious: Yes (Other)
  Sender: FDA-Public Use
  Company Number: A0683891A

PATIENT
  Age: 53 Year
  Sex: Female
  Weight: 58 kg

DRUGS (3)
  1. LAPATINIB [Suspect]
     Indication: BREAST CANCER
     Dosage: 1500MG PER DAY
     Route: 048
     Dates: start: 20070313, end: 20070830
  2. CETIRIZINE HCL [Concomitant]
     Dosage: 5MG PER DAY
     Route: 048
     Dates: start: 20070315, end: 20070830
  3. LEVOTHYROXINE SODIUM [Concomitant]

REACTIONS (1)
  - CYTOLYTIC HEPATITIS [None]
